FAERS Safety Report 5070356-8 (Version None)
Quarter: 2006Q3

REPORT INFORMATION
  Report Type: 
  Country: None (occurrence: None)
  Receive Date: 20060731
  Receipt Date: 20060721
  Transmission Date: 20061208
  Serious: Yes (Life-Threatening, Other)
  Sender: FDA-Public Use
  Company Number: 200610863BNE

PATIENT
  Age: 24 Year
  Sex: Female

DRUGS (1)
  1. NIFEDIPINE [Suspect]
     Indication: TOCOLYSIS
     Dosage: ORAL
     Route: 048

REACTIONS (9)
  - DRUG EXPOSURE DURING PREGNANCY [None]
  - FLUSHING [None]
  - HEADACHE [None]
  - HYPOTENSION [None]
  - INTRA-UTERINE DEATH [None]
  - NAUSEA [None]
  - PALPITATIONS [None]
  - VISUAL DISTURBANCE [None]
  - VOMITING [None]
